FAERS Safety Report 7997301-7 (Version None)
Quarter: 2011Q4

REPORT INFORMATION
  Report Type: 
  Country: None (occurrence: None)
  Receive Date: 20111221
  Receipt Date: 20111220
  Transmission Date: 20120403
  Serious: No
  Sender: FDA-Public Use
  Company Number: US-TEVA-313617USA

PATIENT
  Sex: Female
  Weight: 74.91 kg

DRUGS (4)
  1. SEROQUEL [Concomitant]
     Indication: BIPOLAR DISORDER
  2. LITHIUM CARBONATE [Concomitant]
     Indication: BIPOLAR DISORDER
  3. CLONAZEPAM [Concomitant]
     Indication: BIPOLAR DISORDER
  4. PLAN B ONE-STEP [Suspect]
     Indication: POST COITAL CONTRACEPTION
     Dosage: 1.5 MILLIGRAM;
     Route: 048
     Dates: start: 20111125, end: 20111125

REACTIONS (1)
  - MENSTRUATION IRREGULAR [None]
